FAERS Safety Report 6427501-9 (Version None)
Quarter: 2009Q4

REPORT INFORMATION
  Report Type: 
  Country: None (occurrence: None)
  Receive Date: 20091104
  Receipt Date: 20091025
  Transmission Date: 20100525
  Serious: Yes (Other)
  Sender: FDA-Public Use
  Company Number: PHEH2009US13068

PATIENT
  Sex: Female

DRUGS (3)
  1. EXJADE [Suspect]
     Dosage: 1250 MG, DAILY
     Route: 048
  2. EXJADE [Suspect]
     Dosage: NO TREATMENT
  3. EXJADE [Suspect]
     Dosage: 1250MG DAILY
     Route: 048
     Dates: start: 20091006

REACTIONS (2)
  - PRURITUS [None]
  - SURGERY [None]
